FAERS Safety Report 11164293 (Version 1)
Quarter: 2015Q2

REPORT INFORMATION
  Report Type: Spontaneous
  Country: FR (occurrence: FR)
  Receive Date: 20150604
  Receipt Date: 20150604
  Transmission Date: 20150821
  Serious: Yes (Hospitalization)
  Sender: FDA-Public Use
  Company Number: FR-JNJFOC-20150600133

PATIENT
  Age: 83 Year
  Sex: Female

DRUGS (12)
  1. XARELTO [Suspect]
     Active Substance: RIVAROXABAN
     Indication: PRODUCT USED FOR UNKNOWN INDICATION
     Route: 048
     Dates: start: 20150101, end: 20150419
  2. ZYLORIC [Concomitant]
     Active Substance: ALLOPURINOL
  3. KETUM [Suspect]
     Active Substance: KETOPROFEN
     Indication: PRODUCT USED FOR UNKNOWN INDICATION
     Route: 048
     Dates: start: 20150407, end: 20150419
  4. AMLODIPINE BESILATE [Concomitant]
     Active Substance: AMLODIPINE BESYLATE
  5. SYMBICORT [Concomitant]
     Active Substance: BUDESONIDE\FORMOTEROL FUMARATE DIHYDRATE
  6. XARELTO [Suspect]
     Active Substance: RIVAROXABAN
     Indication: PRODUCT USED FOR UNKNOWN INDICATION
     Route: 048
  7. DAFALGAN [Concomitant]
     Active Substance: ACETAMINOPHEN
  8. TAMSULOSIN [Concomitant]
     Active Substance: TAMSULOSIN
  9. LEVEMIR [Concomitant]
     Active Substance: INSULIN DETEMIR
  10. DIFFU K [Concomitant]
     Active Substance: POTASSIUM CHLORIDE
  11. PERINDOPRIL [Concomitant]
     Active Substance: PERINDOPRIL
  12. NOVOMIX [Concomitant]
     Active Substance: INSULIN ASPART

REACTIONS (2)
  - Anaemia [Recovering/Resolving]
  - Malaise [Recovered/Resolved]

NARRATIVE: CASE EVENT DATE: 20150418
